FAERS Safety Report 4787176-1 (Version None)
Quarter: 2005Q4

REPORT INFORMATION
  Report Type: 
  Country: None (occurrence: None)
  Receive Date: 20051004
  Receipt Date: 20050920
  Transmission Date: 20060501
  Serious: Yes (Death)
  Sender: FDA-Public Use
  Company Number: US-MERCK-0509USA03016

PATIENT
  Age: 84 Year
  Sex: Female
  Weight: 68 kg

DRUGS (3)
  1. VIOXX [Suspect]
     Indication: PAIN
     Route: 048
     Dates: start: 20000101, end: 20001101
  2. VIOXX [Suspect]
     Route: 048
     Dates: start: 20010301, end: 20021101
  3. ARICEPT [Concomitant]
     Indication: PAIN
     Route: 065

REACTIONS (2)
  - DEMENTIA [None]
  - MYOCARDIAL INFARCTION [None]
